FAERS Safety Report 4811464-3 (Version None)
Quarter: 2005Q4

REPORT INFORMATION
  Report Type: 
  Country: None (occurrence: None)
  Receive Date: 20051027
  Receipt Date: 20051012
  Transmission Date: 20060501
  Serious: Yes (Hospitalization)
  Sender: FDA-Public Use
  Company Number: US-ROCHE-421044

PATIENT
  Age: 39 Year
  Sex: Male
  Weight: 69.9 kg

DRUGS (7)
  1. PEG-INTERFERON ALFA 2A (RO 25-8310) [Suspect]
     Route: 058
     Dates: start: 20050415, end: 20050624
  2. RIBAVIRIN [Suspect]
     Route: 048
     Dates: start: 20050415, end: 20050626
  3. FLUTICASONE PROPIONATE [Concomitant]
     Indication: ASTHMA
     Dates: start: 20040615
  4. ALBUTEROL [Concomitant]
     Indication: ASTHMA
     Dates: start: 19750615
  5. TYLENOL (CAPLET) [Concomitant]
     Indication: HEADACHE
     Dates: start: 20050415
  6. SUDAFED 12 HOUR [Concomitant]
     Dates: start: 20050615
  7. PAROXETINE HCL [Concomitant]
     Indication: DEPRESSION
     Dates: start: 20050615

REACTIONS (3)
  - CONCUSSION [None]
  - LACERATION [None]
  - SYNCOPE [None]
